FAERS Safety Report 25850493 (Version 1)
Quarter: 2025Q3

REPORT INFORMATION
  Report Type: Spontaneous
  Country: US (occurrence: US)
  Receive Date: 20250926
  Receipt Date: 20250926
  Transmission Date: 20251020
  Serious: Yes (Hospitalization)
  Sender: ABBVIE
  Company Number: US-ABBVIE-6475995

PATIENT
  Age: 69 Year
  Sex: Male

DRUGS (1)
  1. HUMIRA [Suspect]
     Active Substance: ADALIMUMAB
     Indication: Crohn^s disease
     Dosage: FORM STRENGTH: 40 MILLIGRAM.
     Route: 058
     Dates: start: 202506

REACTIONS (3)
  - Crohn^s disease [Not Recovered/Not Resolved]
  - Device issue [Unknown]
  - Hypertension [Unknown]

NARRATIVE: CASE EVENT DATE: 20250901
